FAERS Safety Report 7230783-7 (Version None)
Quarter: 2011Q1

REPORT INFORMATION
  Report Type: 
  Country: None (occurrence: None)
  Receive Date: 20110118
  Receipt Date: 20110112
  Transmission Date: 20110831
  Serious: No
  Sender: FDA-Public Use
  Company Number: US-B.I. PHARMACEUTICALS,INC./RIDGEFIELD-2010-BP-15162BP

PATIENT
  Age: 80 Year
  Sex: Male

DRUGS (7)
  1. PRADAXA [Suspect]
     Indication: ATRIAL FIBRILLATION
     Dosage: 300 MG
     Route: 048
     Dates: start: 20101210, end: 20101213
  2. PLAVIX [Concomitant]
     Dates: start: 20100101
  3. LIPITOR [Concomitant]
     Indication: BLOOD CHOLESTEROL INCREASED
     Dosage: 80 MG
     Route: 048
  4. RAMIPRIL [Concomitant]
     Indication: HYPERTENSION
     Dosage: 15 MG
     Route: 048
     Dates: start: 20070101
  5. ASA [Concomitant]
     Indication: CARDIAC DISORDER
     Dosage: 81 MG
     Route: 048
     Dates: start: 20060101
  6. BYSTOLIC [Concomitant]
     Indication: HYPERTENSION
     Dosage: 80 MG
     Route: 048
     Dates: start: 20100101
  7. PLAVIX [Concomitant]
     Dates: start: 20101210, end: 20101212

REACTIONS (5)
  - CHEST PAIN [None]
  - DYSPHAGIA [None]
  - THROAT TIGHTNESS [None]
  - RETCHING [None]
  - THROAT IRRITATION [None]
